FAERS Safety Report 8035965-2 (Version None)
Quarter: 2012Q1

REPORT INFORMATION
  Report Type: 
  Country: None (occurrence: None)
  Receive Date: 20120106
  Receipt Date: 20120103
  Transmission Date: 20120608
  Serious: Yes (Hospitalization)
  Sender: FDA-Public Use
  Company Number: 2011SP045027

PATIENT
  Age: 30 Year
  Sex: Female
  Weight: 81.6475 kg

DRUGS (3)
  1. SERTRALINE HYDROCHLORIDE [Concomitant]
  2. ZANTAC [Concomitant]
  3. NUVARING [Suspect]
     Indication: CONTRACEPTION
     Dates: start: 20070501, end: 20070923

REACTIONS (5)
  - HEADACHE [None]
  - BACK PAIN [None]
  - MULTIPLE INJURIES [None]
  - HYPERCOAGULATION [None]
  - PULMONARY EMBOLISM [None]
